FAERS Safety Report 10291883 (Version 1)
Quarter: 2014Q3

REPORT INFORMATION
  Report Type: Spontaneous
  Country: JP (occurrence: JP)
  Receive Date: 20140710
  Receipt Date: 20140710
  Transmission Date: 20150326
  Serious: Yes (Other)
  Sender: FDA-Public Use
  Company Number: JP-TEVA-492658ISR

PATIENT
  Age: 69 Year
  Sex: Male

DRUGS (4)
  1. OMEPRAZOLE. [Concomitant]
     Active Substance: OMEPRAZOLE
     Dosage: 40 MILLIGRAM DAILY;
     Route: 041
     Dates: start: 20140616, end: 20140622
  2. (TS)RANITIDINE INJECTION SOLUTION 100MG ^TAIYO^, INJ, 2.5%4ML1AMPOULE [Suspect]
     Active Substance: RANITIDINE HYDROCHLORIDE
     Dosage: 400 MILLIGRAM DAILY;
     Route: 041
     Dates: start: 20140624, end: 20140701
  3. MAGTECT [Concomitant]
     Route: 048
     Dates: start: 20140702
  4. OMEPRAZOLE. [Concomitant]
     Active Substance: OMEPRAZOLE
     Dosage: 40 MILLIGRAM DAILY;
     Route: 041
     Dates: start: 20140702

REACTIONS (1)
  - Duodenal ulcer haemorrhage [Unknown]

NARRATIVE: CASE EVENT DATE: 20140702
